FAERS Safety Report 11909461 (Version 2)
Quarter: 2016Q1

REPORT INFORMATION
  Report Type: Spontaneous
  Country: US (occurrence: US)
  Receive Date: 20160112
  Receipt Date: 20160307
  Transmission Date: 20160526
  Serious: Yes (Other)
  Sender: FDA-Public Use
  Company Number: US-TEVA-615556USA

PATIENT
  Sex: Female

DRUGS (1)
  1. ZECUITY [Suspect]
     Active Substance: SUMATRIPTAN SUCCINATE
     Indication: PRODUCT USED FOR UNKNOWN INDICATION
     Route: 062

REACTIONS (7)
  - Drug effect incomplete [Unknown]
  - Blood pressure increased [Unknown]
  - Application site burn [Recovered/Resolved]
  - Device battery issue [Unknown]
  - Device adhesion issue [Unknown]
  - Generalised tonic-clonic seizure [Unknown]
  - Device leakage [Unknown]

NARRATIVE: CASE EVENT DATE: 201511
